FAERS Safety Report 14915777 (Version 1)
Quarter: 2018Q2

REPORT INFORMATION
  Report Type: Spontaneous
  Country: NZ (occurrence: NZ)
  Receive Date: 20180518
  Receipt Date: 20180518
  Transmission Date: 20180711
  Serious: Yes (Hospitalization)
  Sender: FDA-Public Use
  Company Number: NZ-009507513-1805NZL007227

PATIENT
  Age: 71 Year
  Sex: Female

DRUGS (4)
  1. KEYTRUDA [Suspect]
     Active Substance: PEMBROLIZUMAB
     Indication: MALIGNANT MELANOMA
     Dosage: 175 MG, CYCLICAL
     Route: 042
     Dates: start: 20170124, end: 20170802
  2. ENSURE [Concomitant]
     Active Substance: AMINO ACIDS\DEXTROSE\ELECTROLYTES NOS\SOYBEAN OIL\VITAMINS
     Route: 048
  3. OMEPRAZOLE. [Suspect]
     Active Substance: OMEPRAZOLE
     Indication: GASTROOESOPHAGEAL REFLUX DISEASE
     Dosage: 20 MG, QD
     Route: 048
     Dates: start: 2010, end: 20170829
  4. IBUPROFEN. [Suspect]
     Active Substance: IBUPROFEN
     Dosage: 400 MG, PRN
     Route: 048

REACTIONS (2)
  - Tubulointerstitial nephritis [Not Recovered/Not Resolved]
  - Renal impairment [Not Recovered/Not Resolved]

NARRATIVE: CASE EVENT DATE: 20170821
